FAERS Safety Report 9906087 (Version 1)
Quarter: 2014Q1

REPORT INFORMATION
  Report Type: Spontaneous
  Country: US (occurrence: None)
  Receive Date: 20140212
  Receipt Date: 20140212
  Transmission Date: 20141002
  Serious: Yes (Other)
  Sender: FDA-Public Use
  Company Number: None

PATIENT
  Age: 20 Day
  Sex: Male
  Weight: 75 kg

DRUGS (1)
  1. CHANTIX PFIZER [Suspect]
     Indication: SMOKING CESSATION THERAPY
     Route: 048

REACTIONS (8)
  - Feeling abnormal [None]
  - Thinking abnormal [None]
  - Abnormal dreams [None]
  - Fear [None]
  - Crying [None]
  - Hypophagia [None]
  - Depression [None]
  - Panic attack [None]
